FAERS Safety Report 15094070 (Version 4)
Quarter: 2018Q3

REPORT INFORMATION
  Report Type: Report from Study
  Country: None (occurrence: CO)
  Receive Date: 20180630
  Receipt Date: 20180901
  Transmission Date: 20181010
  Serious: Yes (Other)
  Sender: FDA-Public Use
  Company Number: CO-ABBVIE-18K-036-2405371-00

PATIENT
  Age: 54 Year
  Sex: Female

DRUGS (2)
  1. LATANOX [Concomitant]
     Indication: PRODUCT USED FOR UNKNOWN INDICATION
  2. HUMIRA [Suspect]
     Active Substance: ADALIMUMAB
     Indication: ANKYLOSING SPONDYLITIS
     Route: 058
     Dates: start: 20090624

REACTIONS (5)
  - Eyelid ptosis [Recovered/Resolved]
  - Glaucoma [Recovered/Resolved]
  - Intestinal mass [Unknown]
  - Dark circles under eyes [Recovered/Resolved]
  - Eye swelling [Recovered/Resolved]

NARRATIVE: CASE EVENT DATE: 201805
